FAERS Safety Report 12264043 (Version 1)
Quarter: 2016Q2

REPORT INFORMATION
  Report Type: Spontaneous
  Country: US (occurrence: US)
  Receive Date: 20160413
  Receipt Date: 20160413
  Transmission Date: 20160815
  Serious: Yes (Other)
  Sender: FDA-Public Use
  Company Number: US-JNJFOC-20160312711

PATIENT
  Age: 78 Year
  Sex: Female
  Weight: 56 kg

DRUGS (6)
  1. IMBRUVICA [Suspect]
     Active Substance: IBRUTINIB
     Indication: B-CELL LYMPHOMA
     Route: 048
     Dates: start: 201410, end: 20160307
  2. EVISTA [Concomitant]
     Active Substance: RALOXIFENE HYDROCHLORIDE
     Indication: OSTEOPENIA
  3. IMBRUVICA [Suspect]
     Active Substance: IBRUTINIB
     Indication: WALDENSTROM^S MACROGLOBULINAEMIA
     Route: 048
     Dates: start: 201410, end: 20160307
  4. IMBRUVICA [Suspect]
     Active Substance: IBRUTINIB
     Indication: WALDENSTROM^S MACROGLOBULINAEMIA
     Route: 048
     Dates: start: 20160309
  5. RANEXA [Concomitant]
     Active Substance: RANOLAZINE
  6. IMBRUVICA [Suspect]
     Active Substance: IBRUTINIB
     Indication: B-CELL LYMPHOMA
     Route: 048
     Dates: start: 20160309

REACTIONS (6)
  - Off label use [Unknown]
  - Abdominal pain [Recovered/Resolved]
  - Decreased appetite [Not Recovered/Not Resolved]
  - Hypertension [Recovered/Resolved]
  - Diarrhoea [Recovered/Resolved]
  - Tenderness [Not Recovered/Not Resolved]

NARRATIVE: CASE EVENT DATE: 20160214
